FAERS Safety Report 13716871 (Version 1)
Quarter: 2017Q3

REPORT INFORMATION
  Report Type: Spontaneous
  Country: US (occurrence: US)
  Receive Date: 20170703
  Receipt Date: 20170703
  Transmission Date: 20171127
  Serious: No
  Sender: FDA-Public Use
  Company Number: None

PATIENT
  Age: 94 Year
  Sex: Male
  Weight: 101.2 kg

DRUGS (1)
  1. AZACTAM [Suspect]
     Active Substance: AZTREONAM
     Indication: MYOSITIS
     Dosage: ?          OTHER DOSE:GM;?
     Route: 041
     Dates: start: 20170613, end: 20170616

REACTIONS (2)
  - Oedema peripheral [None]
  - Erythema [None]

NARRATIVE: CASE EVENT DATE: 20170620
